FAERS Safety Report 15274626 (Version 3)
Quarter: 2018Q3

REPORT INFORMATION
  Report Type: Report from Study
  Country: None (occurrence: US)
  Receive Date: 20180814
  Receipt Date: 20180925
  Transmission Date: 20181010
  Serious: Yes (Other)
  Sender: FDA-Public Use
  Company Number: US-ABBVIE-18K-163-2448595-00

PATIENT
  Sex: Male

DRUGS (1)
  1. HUMIRA [Suspect]
     Active Substance: ADALIMUMAB
     Indication: CROHN^S DISEASE
     Route: 058

REACTIONS (12)
  - Balance disorder [Recovering/Resolving]
  - Transient ischaemic attack [Recovering/Resolving]
  - Hypertension [Recovering/Resolving]
  - Macular degeneration [Not Recovered/Not Resolved]
  - Cerebrovascular accident [Unknown]
  - Eyelid ptosis [Not Recovered/Not Resolved]
  - Joint injury [Recovering/Resolving]
  - Headache [Recovered/Resolved]
  - Cataract [Not Recovered/Not Resolved]
  - Post procedural infection [Recovered/Resolved]
  - Joint instability [Unknown]
  - Fall [Recovering/Resolving]
